FAERS Safety Report 25089005 (Version 1)
Quarter: 2025Q1

REPORT INFORMATION
  Report Type: Spontaneous
  Country: US (occurrence: US)
  Receive Date: 20250318
  Receipt Date: 20250318
  Transmission Date: 20250409
  Serious: Yes (Other)
  Sender: PFIZER
  Company Number: US-AstraZeneca-2024A199135

PATIENT
  Age: 53 Year
  Sex: Female
  Weight: 122.5 kg

DRUGS (6)
  1. VYNDAMAX [Interacting]
     Active Substance: TAFAMIDIS
     Indication: Essential hypertension
     Dosage: 61 MILLIGRAM, 1/DAY
     Route: 048
     Dates: start: 20240702
  2. VYNDAMAX [Interacting]
     Active Substance: TAFAMIDIS
     Indication: Cardiac amyloidosis
  3. CRESTOR [Interacting]
     Active Substance: ROSUVASTATIN CALCIUM
     Dosage: 20 MILLIGRAM, 1/DAY
     Route: 048
  4. XANAX [Concomitant]
     Active Substance: ALPRAZOLAM
     Route: 048
  5. LYRICA [Concomitant]
     Active Substance: PREGABALIN
     Route: 048
  6. LISINOPRIL [Concomitant]
     Active Substance: LISINOPRIL

REACTIONS (7)
  - Cardiac amyloidosis [Unknown]
  - Essential hypertension [Unknown]
  - Fatigue [Unknown]
  - Arthralgia [Unknown]
  - Dyspnoea [Unknown]
  - Asthenia [Unknown]
  - Drug interaction [Unknown]

NARRATIVE: CASE EVENT DATE: 20240705
